FAERS Safety Report 11610975 (Version 3)
Quarter: 2015Q4

REPORT INFORMATION
  Report Type: Spontaneous
  Country: US (occurrence: US)
  Receive Date: 20151008
  Receipt Date: 20151124
  Transmission Date: 20160304
  Serious: No
  Sender: FDA-Public Use
  Company Number: US-PFIZER INC-2015321062

PATIENT
  Age: 57 Year
  Sex: Female

DRUGS (2)
  1. IBRANCE [Suspect]
     Active Substance: PALBOCICLIB
     Dosage: 125 MG, 1X/DAY (Q DAY X21 DAYS)
     Route: 048
     Dates: start: 20150911
  2. IBRANCE [Suspect]
     Active Substance: PALBOCICLIB
     Dosage: 125 MG, UNK (125 G Q DAY X21 DAYS)
     Route: 048
     Dates: start: 20151002

REACTIONS (2)
  - Nausea [Unknown]
  - Fatigue [Unknown]
